FAERS Safety Report 9034544 (Version 2)
Quarter: 2013Q1

REPORT INFORMATION
  Report Type: Spontaneous
  Country: DE (occurrence: DE)
  Receive Date: 20130128
  Receipt Date: 20130205
  Transmission Date: 20140127
  Serious: Yes (Other)
  Sender: FDA-Public Use
  Company Number: DE-BAYER-2013-006319

PATIENT
  Age: 61 Year
  Sex: Female
  Weight: 58.05 kg

DRUGS (2)
  1. ASPIRIN PROTECT 100 [Suspect]
     Dosage: 100 MG, UNK
     Dates: start: 2012, end: 201210
  2. ASPIRIN PROTECT 100 [Suspect]

REACTIONS (1)
  - Constipation [None]
